FAERS Safety Report 6342584-2 (Version None)
Quarter: 2009Q3

REPORT INFORMATION
  Report Type: 
  Country: None (occurrence: None)
  Receive Date: 20090908
  Receipt Date: 20051114
  Transmission Date: 20100115
  Serious: No
  Sender: FDA-Public Use
  Company Number: JP-ROCHE-425988

PATIENT
  Sex: Female
  Weight: 3.1 kg

DRUGS (6)
  1. OSELTAMIVIR [Suspect]
     Dates: start: 20050307, end: 20050309
  2. GENERIC UNKNOWN [Concomitant]
     Indication: COUGH
     Dosage: REPORTED AS: SHOUSEI RYUUTO (HERBAL MEDICINES).  DOSAGEL 7.5 GRAMS.
     Dates: start: 20050304, end: 20050309
  3. CALONAL [Concomitant]
     Dosage: DOSAGE: 1200MG.
     Dates: start: 20050307, end: 20050317
  4. ASTHMA MEDICATIONS NOS [Concomitant]
     Indication: COUGH
     Dosage: DOSAGE: 6 CAPSULES.
     Dates: start: 20050308, end: 20050309
  5. MUCOSOLVAN [Concomitant]
     Dosage: DOSAGE: 3 TABLETS.
     Dates: start: 20050308, end: 20050317
  6. THEO-DUR [Concomitant]
     Indication: COUGH
     Dosage: DOSAGE: 800MG.
     Dates: start: 20050308, end: 20050317

REACTIONS (3)
  - CAESAREAN SECTION [None]
  - DRUG EXPOSURE DURING PREGNANCY [None]
  - NORMAL NEWBORN [None]
